FAERS Safety Report 18104632 (Version 1)
Quarter: 2020Q3

REPORT INFORMATION
  Report Type: Spontaneous
  Country: US (occurrence: US)
  Receive Date: 20200803
  Receipt Date: 20200803
  Transmission Date: 20201103
  Serious: Yes (Life-Threatening, Hospitalization)
  Sender: FDA-Public Use
  Company Number: None

PATIENT
  Age: 54 Year
  Sex: Male
  Weight: 179 kg

DRUGS (3)
  1. CANAGLIFLOZIN [Suspect]
     Active Substance: CANAGLIFLOZIN
     Indication: TYPE 2 DIABETES MELLITUS
     Route: 048
     Dates: start: 20200506
  2. DULAGLUTIDE. [Concomitant]
     Active Substance: DULAGLUTIDE
  3. CANAGLIFLOZIN [Suspect]
     Active Substance: CANAGLIFLOZIN
     Indication: CARDIAC FAILURE CONGESTIVE
     Route: 048
     Dates: start: 20200506

REACTIONS (3)
  - Necrotising fasciitis [None]
  - Septic shock [None]
  - Bacteraemia [None]

NARRATIVE: CASE EVENT DATE: 20200728
